FAERS Safety Report 9827243 (Version 2)
Quarter: 2014Q1

REPORT INFORMATION
  Report Type: Spontaneous
  Country: US (occurrence: US)
  Receive Date: 20140117
  Receipt Date: 20140117
  Transmission Date: 20141002
  Serious: Yes (Other)
  Sender: FDA-Public Use
  Company Number: US-BRISTOL-MYERS SQUIBB COMPANY-19656545

PATIENT
  Age: 74 Year
  Sex: Male

DRUGS (2)
  1. YERVOY [Suspect]
     Indication: METASTATIC MALIGNANT MELANOMA
     Dates: start: 201212, end: 2013
  2. DACARBAZINE [Suspect]
     Indication: METASTATIC MALIGNANT MELANOMA
     Dates: start: 2013

REACTIONS (1)
  - Malignant neoplasm progression [Unknown]
